FAERS Safety Report 5443051-0 (Version None)
Quarter: 2007Q3

REPORT INFORMATION
  Report Type: 
  Country: None (occurrence: None)
  Receive Date: 20070905
  Receipt Date: 20070903
  Transmission Date: 20080115
  Serious: Yes (Death, Hospitalization)
  Sender: FDA-Public Use
  Company Number: PHNU2007DE02454

PATIENT
  Sex: Female

DRUGS (5)
  1. FEMARA [Suspect]
     Indication: BREAST CANCER
     Dosage: 2.5 MG, QD
     Route: 048
     Dates: start: 20060712
  2. GLYBURIDE [Concomitant]
     Route: 065
  3. METFORMIN HCL [Concomitant]
     Route: 065
  4. ASPIRIN [Concomitant]
     Dosage: 100 MG, QD
     Route: 065
  5. HEPARIN [Concomitant]
     Indication: THROMBOSIS PROPHYLAXIS
     Route: 065

REACTIONS (2)
  - HIP SURGERY [None]
  - PULMONARY EMBOLISM [None]
